FAERS Safety Report 11078771 (Version 1)
Quarter: 2015Q2

REPORT INFORMATION
  Report Type: Spontaneous
  Country: US (occurrence: US)
  Receive Date: 20150430
  Receipt Date: 20150430
  Transmission Date: 20150821
  Serious: Yes (Other)
  Sender: FDA-Public Use
  Company Number: US-PFIZER INC-2015141123

PATIENT
  Age: 61 Year
  Sex: Female

DRUGS (2)
  1. PREGABALIN. [Suspect]
     Active Substance: PREGABALIN
     Dosage: UNK
  2. BUTRANS [Suspect]
     Active Substance: BUPRENORPHINE
     Dosage: UNK

REACTIONS (8)
  - Neuralgia [Unknown]
  - Weight increased [Unknown]
  - General physical health deterioration [Unknown]
  - Systemic lupus erythematosus [Unknown]
  - Bipolar I disorder [Unknown]
  - Pain [Unknown]
  - Autoimmune disorder [Unknown]
  - Activities of daily living impaired [Unknown]
